FAERS Safety Report 17845007 (Version 1)
Quarter: 2020Q2

REPORT INFORMATION
  Report Type: Spontaneous
  Country: US (occurrence: US)
  Receive Date: 20200529
  Receipt Date: 20200529
  Transmission Date: 20200714
  Serious: Yes (Other)
  Sender: FDA-Public Use
  Company Number: None

PATIENT
  Age: 75 Year
  Sex: Female
  Weight: 96 kg

DRUGS (22)
  1. REMDESIVIR. [Suspect]
     Active Substance: REMDESIVIR
     Indication: COVID-19
     Route: 041
     Dates: start: 20200526, end: 20200529
  2. ATORVASTATIN 10MG AT BEDTIME [Concomitant]
     Dates: start: 20200522
  3. LORAZEPAM 1MG INJECTION ONCE [Concomitant]
     Dates: start: 20200526, end: 20200526
  4. OMEGA 3 FATTY ACID 2000MG TWICE DAILY [Concomitant]
     Dates: start: 20200522
  5. PANTOPRAZOLE 40MG IV TWICE DAILY [Concomitant]
     Dates: start: 20200527
  6. PROPOFOL 1000MG TITRATION [Concomitant]
     Dates: start: 20200526
  7. ACETAMINOPHEN 325MG TABLET [Concomitant]
     Dates: start: 20200525, end: 20200526
  8. INSULIN LISPRO PER SLIDING SCALE [Concomitant]
     Dates: start: 20200522
  9. DOXEPIN 10MG [Concomitant]
     Dates: start: 20200522, end: 20200529
  10. ERYTHROMYCIN OPTH OINTMENT TWICE DAILY [Concomitant]
     Dates: start: 20200523
  11. OSMOLITE 1.5 CAL LIQUID [Concomitant]
     Dates: start: 20200527
  12. CHLORHEXIDINE MOUTHWASH [Concomitant]
     Active Substance: CHLORHEXIDINE
     Dates: start: 20200527
  13. HEPARIN IN D5W 25000 UNIT BAG [Concomitant]
     Dates: start: 20200526, end: 20200528
  14. ENSURE CLNICAL HEALTH [Concomitant]
     Dates: start: 20200525, end: 20200528
  15. METHYLPREDNISOLONE 125MG IV EVERY 6 HRS [Concomitant]
     Dates: start: 20200527, end: 20200529
  16. LEVOTHYROXINE 137MCG PER DOSE [Concomitant]
     Dates: start: 20200524
  17. SERTRALINE 25MG DAILY [Concomitant]
     Dates: start: 20200522, end: 20200529
  18. FUROSEMIDE 40MG IV ONCE [Concomitant]
     Dates: start: 20200526, end: 20200527
  19. SODIUM CHLORIDE 0.9% @ 50ML/HR [Concomitant]
     Dates: start: 20200522
  20. NOEPINEPHRINE 4MG IN 500ML DEXTROSE 5% [Concomitant]
     Dates: start: 20200526, end: 20200527
  21. HYDROXYCHLOROQUINE 200MG [Concomitant]
     Active Substance: HYDROXYCHLOROQUINE
     Dates: start: 20200527
  22. PROPRANOLOL 40MG TWICE DAILY [Concomitant]
     Dates: start: 20200522

REACTIONS (1)
  - Renal impairment [None]

NARRATIVE: CASE EVENT DATE: 20200529
